FAERS Safety Report 4863463-3 (Version None)
Quarter: 2005Q4

REPORT INFORMATION
  Report Type: 
  Country: None (occurrence: None)
  Receive Date: 20051222
  Receipt Date: 20050214
  Transmission Date: 20060501
  Serious: No
  Sender: FDA-Public Use
  Company Number: US-GLAXOSMITHKLINE-A0545497A

PATIENT
  Age: 70 Year
  Sex: Female

DRUGS (12)
  1. FLONASE [Suspect]
     Indication: SINUSITIS
     Dosage: 1SPR TWICE PER DAY
     Route: 045
     Dates: end: 20041001
  2. SEREVENT [Suspect]
     Indication: CHRONIC OBSTRUCTIVE PULMONARY DISEASE
  3. OXYGEN [Concomitant]
  4. SALINE [Concomitant]
  5. NEBULIZER [Concomitant]
  6. RESCUE REMEDY [Concomitant]
  7. THEOPHYLLINE [Concomitant]
  8. ATROVENT [Concomitant]
  9. ANACIN [Concomitant]
  10. ASPIRIN [Concomitant]
  11. ZANTAC [Concomitant]
  12. OPTIVAR [Concomitant]

REACTIONS (3)
  - DRUG INEFFECTIVE [None]
  - DRY MOUTH [None]
  - HEART RATE INCREASED [None]
